FAERS Safety Report 12921744 (Version 2)
Quarter: 2016Q4

REPORT INFORMATION
  Report Type: Report from Study
  Country: CA (occurrence: CA)
  Receive Date: 20161108
  Receipt Date: 20161121
  Transmission Date: 20170207
  Serious: Yes (Other)
  Sender: FDA-Public Use
  Company Number: CA-GILEAD-2016-0241978

PATIENT
  Age: 66 Year
  Sex: Male

DRUGS (14)
  1. FERROUS GLUCONATE [Concomitant]
     Active Substance: FERROUS GLUCONATE
  2. MIRTAZAPINE. [Concomitant]
     Active Substance: MIRTAZAPINE
  3. PRAVASTATIN. [Concomitant]
     Active Substance: PRAVASTATIN
  4. AMLODIPINE [Concomitant]
     Active Substance: AMLODIPINE BESYLATE
  5. RIBAVIRIN. [Suspect]
     Active Substance: RIBAVIRIN
     Indication: HEPATITIS C
     Dosage: 1000 MG, QD
     Route: 048
     Dates: start: 20150716, end: 20151014
  6. INSULIN [Concomitant]
     Active Substance: INSULIN NOS
  7. RAMIPRIL. [Concomitant]
     Active Substance: RAMIPRIL
  8. LACTULOSE. [Concomitant]
     Active Substance: LACTULOSE
  9. PANTOLOC                           /01263204/ [Concomitant]
     Active Substance: PANTOPRAZOLE SODIUM
  10. SOFOSBUVIR [Suspect]
     Active Substance: SOFOSBUVIR
     Indication: HEPATITIS C
     Dosage: 400 MG, QD
     Route: 048
     Dates: start: 20150716, end: 20151014
  11. NITROGLYCERIN. [Concomitant]
     Active Substance: NITROGLYCERIN
  12. BISOPROLOL [Concomitant]
     Active Substance: BISOPROLOL
  13. DIAMICRON [Concomitant]
     Active Substance: GLICLAZIDE
  14. ASA [Concomitant]
     Active Substance: ASPIRIN

REACTIONS (3)
  - Hepatic cirrhosis [Not Recovered/Not Resolved]
  - Hepatitis C [Not Recovered/Not Resolved]
  - Drug ineffective [Not Recovered/Not Resolved]
